FAERS Safety Report 4608933-8 (Version None)
Quarter: 2005Q1

REPORT INFORMATION
  Report Type: 
  Country: None (occurrence: None)
  Receive Date: 20050311
  Receipt Date: 20050228
  Transmission Date: 20050727
  Serious: Yes (Hospitalization, Other)
  Sender: FDA-Public Use
  Company Number: HQWYE739101MAR05

PATIENT
  Age: 49 Year
  Sex: Male

DRUGS (4)
  1. INDERAL [Suspect]
     Indication: MIGRAINE
     Dosage: SEE IMAGE
     Route: 048
     Dates: start: 20040101, end: 20041130
  2. INDERAL [Suspect]
     Indication: MIGRAINE
     Dosage: SEE IMAGE
     Route: 048
     Dates: start: 20041201, end: 20050123
  3. INDERAL [Suspect]
     Indication: MIGRAINE
     Dosage: SEE IMAGE
     Route: 048
     Dates: start: 20050124, end: 20050201
  4. INDERAL [Suspect]
     Indication: MIGRAINE
     Dosage: SEE IMAGE
     Route: 048
     Dates: start: 20050202

REACTIONS (3)
  - HEADACHE [None]
  - HEART RATE DECREASED [None]
  - SUPRAVENTRICULAR EXTRASYSTOLES [None]
